FAERS Safety Report 23985759 (Version 2)
Quarter: 2024Q3

REPORT INFORMATION
  Report Type: Spontaneous
  Country: IT (occurrence: IT)
  Receive Date: 20240618
  Receipt Date: 20240723
  Transmission Date: 20241017
  Serious: Yes (Other)
  Sender: BAXTER
  Company Number: None

PATIENT
  Age: 21 Year
  Sex: Male

DRUGS (7)
  1. DOXORUBICIN [Suspect]
     Active Substance: DOXORUBICIN
     Dosage: 47 MG
     Route: 065
  2. BLEOMYCIN [Suspect]
     Active Substance: BLEOMYCIN SULFATE
     Dosage: 16 MG
     Route: 065
  3. RITUXIMAB [Suspect]
     Active Substance: RITUXIMAB
     Indication: Hodgkin^s disease
     Dosage: 715 MG
     Route: 065
  4. CITALOPRAM [Interacting]
     Active Substance: CITALOPRAM\CITALOPRAM HYDROBROMIDE
     Dosage: CITALOPRAM 12 DROPS IN THE EVENING, SWITCH TO 10 DROPS
     Route: 065
  5. ZOLPIDEM TARTRATE [Interacting]
     Active Substance: ZOLPIDEM TARTRATE
     Dosage: SONIREM 16 DROPS IN THE EVENING
     Route: 065
  6. VINBLASTINE [Suspect]
     Active Substance: VINBLASTINE
     Dosage: 10 MG
     Route: 065
  7. DACARBAZINE [Suspect]
     Active Substance: DACARBAZINE
     Dosage: 715 MG
     Route: 065

REACTIONS (1)
  - Transaminases increased [Unknown]

NARRATIVE: CASE EVENT DATE: 20240529
